FAERS Safety Report 9906249 (Version 1)
Quarter: 2014Q1

REPORT INFORMATION
  Report Type: Spontaneous
  Country: FR (occurrence: FR)
  Receive Date: 20140218
  Receipt Date: 20140218
  Transmission Date: 20141002
  Serious: Yes (Hospitalization)
  Sender: FDA-Public Use
  Company Number: FR-ASTRAZENECA-2014SE09971

PATIENT
  Age: 71 Year
  Sex: Male

DRUGS (5)
  1. INEXIUM [Suspect]
     Dates: end: 20140122
  2. CEFOTAXIME [Suspect]
     Dosage: DAILY
     Dates: start: 20131229, end: 20140122
  3. LOVENOX [Concomitant]
  4. MEDROL [Concomitant]
  5. CARDENSIEL [Concomitant]

REACTIONS (2)
  - Serratia bacteraemia [Unknown]
  - Agranulocytosis [Unknown]
